FAERS Safety Report 11093718 (Version 1)
Quarter: 2015Q2

REPORT INFORMATION
  Report Type: Spontaneous
  Country: AU (occurrence: AU)
  Receive Date: 20150506
  Receipt Date: 20150506
  Transmission Date: 20150821
  Serious: Yes (Other)
  Sender: FDA-Public Use
  Company Number: AU-009507513-1505AUS001223

PATIENT
  Age: 53 Year
  Sex: Female

DRUGS (3)
  1. ALOXI [Suspect]
     Active Substance: PALONOSETRON HYDROCHLORIDE
     Dosage: 250 MICROGRAM, Q3W
     Route: 040
     Dates: start: 20150205
  2. EMEND [Suspect]
     Active Substance: APREPITANT
     Dosage: 165 MG, Q3W
     Route: 048
     Dates: start: 20150205
  3. OXALIPLATIN. [Suspect]
     Active Substance: OXALIPLATIN
     Dosage: 230 MICROGRAM, Q3W
     Route: 042
     Dates: start: 20150205

REACTIONS (1)
  - Paraesthesia [Recovered/Resolved]

NARRATIVE: CASE EVENT DATE: 20150205
